FAERS Safety Report 7380083-X (Version None)
Quarter: 2011Q1

REPORT INFORMATION
  Report Type: 
  Country: None (occurrence: None)
  Receive Date: 20110329
  Receipt Date: 20100315
  Transmission Date: 20110831
  Serious: No
  Sender: FDA-Public Use
  Company Number: US-MYLANLABS-2010S1001263

PATIENT
  Age: 67 Year
  Sex: Female

DRUGS (10)
  1. ESTRADIOL [Suspect]
     Indication: HORMONE REPLACEMENT THERAPY
     Dosage: CHANGED QW
     Route: 062
  2. MICARDIS HCT [Concomitant]
     Dosage: 80/25MG
  3. ACTOPLUS MET [Concomitant]
     Dosage: 15/850 MG
  4. VITAMIN D [Concomitant]
  5. MULTI-VITAMIN [Concomitant]
  6. OMEGA 3 /01334101/ [Concomitant]
  7. ASCORBIC ACID [Concomitant]
  8. ASPIRIN [Concomitant]
  9. BIOTIN [Concomitant]
  10. ZOCOR [Concomitant]

REACTIONS (3)
  - APPLICATION SITE IRRITATION [None]
  - APPLICATION SITE ERYTHEMA [None]
  - APPLICATION SITE PRURITUS [None]
